FAERS Safety Report 14417539 (Version 3)
Quarter: 2019Q1

REPORT INFORMATION
  Report Type: Spontaneous
  Country: US (occurrence: US)
  Receive Date: 20180122
  Receipt Date: 20190116
  Transmission Date: 20190417
  Serious: No
  Sender: FDA-Public Use
  Company Number: US-ASTRAZENECA-2018SE06971

PATIENT
  Age: 1117 Month
  Sex: Female
  Weight: 59 kg

DRUGS (19)
  1. ATORVASTATIN CALCIUM. [Concomitant]
     Active Substance: ATORVASTATIN CALCIUM
  2. LOSARTAN. [Concomitant]
     Active Substance: LOSARTAN
  3. OMEGA 3 [Concomitant]
     Active Substance: OMEGA-3 FATTY ACIDS
  4. TRAMADOL. [Concomitant]
     Active Substance: TRAMADOL
  5. BIOTIN [Concomitant]
     Active Substance: BIOTIN
  6. HERCEPTIN [Concomitant]
     Active Substance: TRASTUZUMAB
     Dosage: EVERY THREE WEEKS
  7. CHLORTHALIDONE. [Concomitant]
     Active Substance: CHLORTHALIDONE
  8. LATANOPROST. [Concomitant]
     Active Substance: LATANOPROST
     Dosage: ONE DROP AT NIGHT IN EACH EYE
  9. REVATIO SOLID [Concomitant]
  10. LANTUS [Concomitant]
     Active Substance: INSULIN GLARGINE
     Dates: start: 201709
  11. BYDUREON [Suspect]
     Active Substance: EXENATIDE
     Indication: TYPE 2 DIABETES MELLITUS
     Route: 058
     Dates: start: 2016
  12. HYDRALAZINE [Concomitant]
     Active Substance: HYDRALAZINE HYDROCHLORIDE
  13. BYDUREON [Suspect]
     Active Substance: EXENATIDE
     Indication: TYPE 2 DIABETES MELLITUS
     Route: 058
     Dates: start: 201709
  14. ACTOS [Concomitant]
     Active Substance: PIOGLITAZONE HYDROCHLORIDE
  15. CARVEDILOL. [Concomitant]
     Active Substance: CARVEDILOL
  16. JARDIANCE [Concomitant]
     Active Substance: EMPAGLIFLOZIN
  17. SYNTHROID [Concomitant]
     Active Substance: LEVOTHYROXINE SODIUM
  18. ANASTROZOLE. [Concomitant]
     Active Substance: ANASTROZOLE
     Indication: BREAST CANCER
  19. ELIQUIS [Concomitant]
     Active Substance: APIXABAN

REACTIONS (5)
  - Alopecia [Unknown]
  - Intentional product misuse [Unknown]
  - Device malfunction [Unknown]
  - Injection site pain [Unknown]
  - Glaucoma [Unknown]

NARRATIVE: CASE EVENT DATE: 201710
